FAERS Safety Report 4392040-6 (Version None)
Quarter: 2004Q3

REPORT INFORMATION
  Report Type: 
  Country: None (occurrence: None)
  Receive Date: 20040708
  Receipt Date: 20040609
  Transmission Date: 20050211
  Serious: Yes (Hospitalization)
  Sender: FDA-Public Use
  Company Number: PHHO2004AR08261

PATIENT
  Age: 29 Year
  Sex: Male
  Weight: 75 kg

DRUGS (5)
  1. FTY720 VS MYCOPHENOLATE MOFETIL [Suspect]
     Indication: RENAL TRANSPLANT
     Dosage: CODE NOT BROKEN
     Route: 048
     Dates: start: 20031008, end: 20040608
  2. FTY720 VS MYCOPHENOLATE MOFETIL [Suspect]
     Dosage: CODE NOT BROKEN
     Route: 048
     Dates: start: 20040612
  3. FTY720 VS MYCOPHENOLATE MOFETIL [Suspect]
     Dosage: UNK, NO TREATMENT
     Dates: start: 20040609, end: 20040611
  4. NEORAL [Suspect]
     Indication: RENAL TRANSPLANT
     Dosage: 300 MG, BID
     Route: 048
     Dates: start: 20040303
  5. PREDNISONE [Suspect]
     Indication: RENAL TRANSPLANT
     Dosage: 5 MG, QD
     Route: 048
     Dates: start: 20040406

REACTIONS (6)
  - ABDOMINAL PAIN [None]
  - DIARRHOEA [None]
  - HYPERPHAGIA [None]
  - LEUKOPENIA [None]
  - PYREXIA [None]
  - VOMITING [None]
